FAERS Safety Report 12354310 (Version 2)
Quarter: 2016Q2

REPORT INFORMATION
  Report Type: Spontaneous
  Country: CH (occurrence: CH)
  Receive Date: 20160511
  Receipt Date: 20160527
  Transmission Date: 20160815
  Serious: Yes (Hospitalization)
  Sender: FDA-Public Use
  Company Number: CH-ROCHE-1755745

PATIENT
  Age: 73 Year
  Sex: Male
  Weight: 83.5 kg

DRUGS (1)
  1. MABTHERA [Suspect]
     Active Substance: RITUXIMAB
     Indication: GRANULOMATOSIS WITH POLYANGIITIS
     Dosage: SECOND INFUSION ON 28/APR/2016
     Route: 042
     Dates: start: 20160420, end: 20160428

REACTIONS (3)
  - Chills [Unknown]
  - Hypotension [Recovering/Resolving]
  - Cerebrovascular disorder [Recovering/Resolving]

NARRATIVE: CASE EVENT DATE: 20160420
